FAERS Safety Report 9360762 (Version 1)
Quarter: 2013Q2

REPORT INFORMATION
  Report Type: Spontaneous
  Country: FR (occurrence: None)
  Receive Date: 20130618
  Receipt Date: 20130618
  Transmission Date: 20140414
  Serious: Yes (Disabling)
  Sender: FDA-Public Use
  Company Number: AUR-APL-2013-04932

PATIENT
  Age: 79 Year
  Sex: Male

DRUGS (13)
  1. MIRTAZAPINE [Suspect]
     Indication: TREMOR
     Dosage: (15 MG, 1 D)
     Dates: start: 20130321, end: 20130406
  2. LYRICA (PREGABALIN) [Suspect]
     Indication: PRODUCT USED FOR UNKNOWN INDICATION
     Dosage: (75 MG, 1 D)
     Route: 048
     Dates: start: 20130402, end: 20130407
  3. CORDARONE (AMIODARONE HYDROCHLORIDE)/ORAL/TABLET/200 MILLIGRAMS(S) [Concomitant]
  4. DEPAKINE CHRONO (ERGENYL CHRONO) [Concomitant]
  5. GABAPENTIN (GABAPENTIN) [Concomitant]
  6. PLAVIX [Concomitant]
  7. INEXIUM [Concomitant]
  8. LASILIX (FUROSEMIDE) [Concomitant]
  9. ZITHROMAX [Concomitant]
  10. SYMBICORT [Concomitant]
  11. NOVONORM [Concomitant]
  12. LEVOTHYROX (LEVOTHYROXINE SODIUM) INFUSION [Concomitant]
  13. LANTUS (INSULIN GLARGINE) [Concomitant]

REACTIONS (7)
  - Tremor [None]
  - Fall [None]
  - Respiratory distress [None]
  - Dysstasia [None]
  - Cerebral atrophy [None]
  - Lacunar infarction [None]
  - Cerebral disorder [None]
